FAERS Safety Report 9340653 (Version 3)
Quarter: 2013Q3

REPORT INFORMATION
  Report Type: Spontaneous
  Country: US (occurrence: US)
  Receive Date: 20130610
  Receipt Date: 20130906
  Transmission Date: 20140515
  Serious: Yes (Hospitalization)
  Sender: FDA-Public Use
  Company Number: US-GLAXOSMITHKLINE-A1025565A

PATIENT
  Sex: Female

DRUGS (13)
  1. ADVAIR [Suspect]
     Indication: ASTHMA
     Dosage: 1PUFF TWICE PER DAY
     Route: 055
     Dates: start: 2001
  2. PROVENTIL [Concomitant]
  3. MULTIVITAMIN [Concomitant]
  4. LORAZEPAM [Concomitant]
  5. PROTONIX [Concomitant]
  6. MORPHINE [Concomitant]
  7. DILAUDID [Concomitant]
  8. XGEVA [Concomitant]
  9. CALCIUM [Concomitant]
  10. MAGNESIUM [Concomitant]
  11. ASPIRIN [Concomitant]
  12. MULTIVITAMIN [Concomitant]
  13. FEMARA [Concomitant]

REACTIONS (12)
  - Cranial operation [Unknown]
  - Spindle cell sarcoma [Not Recovered/Not Resolved]
  - Chest discomfort [Not Recovered/Not Resolved]
  - Dyspnoea [Not Recovered/Not Resolved]
  - Dysphonia [Not Recovered/Not Resolved]
  - Respiration abnormal [Not Recovered/Not Resolved]
  - Dizziness [Not Recovered/Not Resolved]
  - Dehydration [Not Recovered/Not Resolved]
  - Pyrexia [Not Recovered/Not Resolved]
  - Ill-defined disorder [Not Recovered/Not Resolved]
  - Vomiting projectile [Not Recovered/Not Resolved]
  - Product quality issue [Unknown]
